FAERS Safety Report 10155169 (Version 1)
Quarter: 2014Q2

REPORT INFORMATION
  Report Type: Spontaneous
  Country: US (occurrence: None)
  Receive Date: 20140505
  Receipt Date: 20140505
  Transmission Date: 20141212
  Serious: Yes (Other)
  Sender: FDA-Public Use
  Company Number: None

PATIENT
  Age: 2 Year
  Sex: Male
  Weight: 13.61 kg

DRUGS (1)
  1. TRAMADOL [Suspect]
     Indication: PAIN
     Dosage: 5ML, FOUR TIMES DAILY, TAKEN BY MOUTH
     Route: 048
     Dates: start: 20140110, end: 20140115

REACTIONS (1)
  - Convulsive threshold lowered [None]
